FAERS Safety Report 5574555-8 (Version None)
Quarter: 2007Q4

REPORT INFORMATION
  Report Type: 
  Country: None (occurrence: None)
  Receive Date: 20071227
  Receipt Date: 20071218
  Transmission Date: 20080405
  Serious: Yes (Hospitalization)
  Sender: FDA-Public Use
  Company Number: GB-TEVA-165436ISR

PATIENT
  Age: 64 Year
  Sex: Male

DRUGS (1)
  1. TRIMETHOPRIM [Suspect]
     Indication: URINARY TRACT INFECTION
     Route: 048
     Dates: start: 20071115, end: 20071118

REACTIONS (3)
  - NAUSEA [None]
  - OLIGURIA [None]
  - RENAL FAILURE ACUTE [None]
